FAERS Safety Report 11823618 (Version 1)
Quarter: 2015Q4

REPORT INFORMATION
  Report Type: Spontaneous
  Country: US (occurrence: GB)
  Receive Date: 20151210
  Receipt Date: 20151210
  Transmission Date: 20160305
  Serious: No
  Sender: FDA-Public Use
  Company Number: GB-AKRON, INC.-1045318

PATIENT
  Age: 21 Year
  Sex: Male

DRUGS (4)
  1. BIMATOPROST. [Suspect]
     Active Substance: BIMATOPROST
  2. COSOPT [Suspect]
     Active Substance: DORZOLAMIDE HYDROCHLORIDE\TIMOLOL MALEATE
  3. ALPHAGAN P [Suspect]
     Active Substance: BRIMONIDINE TARTRATE
  4. ACETAZOLAMIDE. [Suspect]
     Active Substance: ACETAZOLAMIDE

REACTIONS (3)
  - Optic nerve injury [Unknown]
  - Intraocular pressure increased [Recovered/Resolved]
  - Drug ineffective [None]
